FAERS Safety Report 14845928 (Version 1)
Quarter: 2018Q2

REPORT INFORMATION
  Report Type: Spontaneous
  Country: FR (occurrence: FR)
  Receive Date: 20180504
  Receipt Date: 20180504
  Transmission Date: 20180711
  Serious: Yes (Other)
  Sender: FDA-Public Use
  Company Number: FR-MERCK KGAA-2047172

PATIENT
  Age: 54 Year
  Sex: Female

DRUGS (1)
  1. NOVOTHYROX [Suspect]
     Active Substance: LEVOTHYROXINE SODIUM
     Indication: POST PROCEDURAL HYPOTHYROIDISM

REACTIONS (19)
  - Muscle spasms [None]
  - Alopecia [None]
  - Personal relationship issue [None]
  - Aggression [None]
  - Nausea [None]
  - Decreased interest [None]
  - Mood swings [None]
  - Crying [None]
  - Pain in extremity [None]
  - Suicidal ideation [None]
  - Weight increased [None]
  - Insomnia [None]
  - Dizziness [None]
  - Pain [None]
  - Fatigue [None]
  - Gait disturbance [None]
  - Diarrhoea [None]
  - Gastrointestinal pain [None]
  - Social problem [None]

NARRATIVE: CASE EVENT DATE: 201704
